FAERS Safety Report 19263676 (Version 1)
Quarter: 2021Q2

REPORT INFORMATION
  Report Type: Spontaneous
  Country: US (occurrence: US)
  Receive Date: 20210514
  Receipt Date: 20210514
  Transmission Date: 20210717
  Serious: Yes (Disabling, Other)
  Sender: FDA-Public Use
  Company Number: None

PATIENT
  Age: 79 Year
  Sex: Male
  Weight: 72 kg

DRUGS (15)
  1. TOPROL XL [Concomitant]
     Active Substance: METOPROLOL SUCCINATE
  2. DIPROPIONATE [Concomitant]
  3. PROCTOZONE?HC [Concomitant]
     Active Substance: HYDROCORTISONE
  4. VITAMIN B12 [Concomitant]
     Active Substance: CYANOCOBALAMIN
  5. VITAMIN C [Concomitant]
     Active Substance: ASCORBIC ACID
  6. LISINOPRIL. [Concomitant]
     Active Substance: LISINOPRIL
  7. CUVITRU [Suspect]
     Active Substance: HUMAN IMMUNOGLOBULIN G
     Indication: BLOOD IMMUNOGLOBULIN G DECREASED
     Route: 058
     Dates: start: 20210424, end: 20210424
  8. LA TANOPROST [Concomitant]
  9. IPRATROPIUM BROMIDE. [Concomitant]
     Active Substance: IPRATROPIUM BROMIDE
  10. PANTOPRAZOLE SODIUM. [Concomitant]
     Active Substance: PANTOPRAZOLE SODIUM
  11. FOLIC ACID. [Concomitant]
     Active Substance: FOLIC ACID
  12. CQ?10 [Concomitant]
  13. TERAZOSIN [Concomitant]
     Active Substance: TERAZOSIN HYDROCHLORIDE
  14. ELIQUIS [Concomitant]
     Active Substance: APIXABAN
  15. BETAMETHASONE. [Concomitant]
     Active Substance: BETAMETHASONE

REACTIONS (2)
  - Swelling [None]
  - Blood pressure increased [None]

NARRATIVE: CASE EVENT DATE: 20210424
